FAERS Safety Report 6648998-5 (Version None)
Quarter: 2010Q1

REPORT INFORMATION
  Report Type: 
  Country: None (occurrence: None)
  Receive Date: 20100324
  Receipt Date: 20100315
  Transmission Date: 20100710
  Serious: Yes (Life-Threatening, Hospitalization, Other)
  Sender: FDA-Public Use
  Company Number: FR-BRISTOL-MYERS SQUIBB COMPANY-14729826

PATIENT
  Age: 76 Year
  Sex: Female

DRUGS (9)
  1. GLUCOPHAGE [Suspect]
     Route: 048
     Dates: end: 20090602
  2. ADVIL LIQUI-GELS [Interacting]
     Dosage: FORM=TABS
     Route: 048
     Dates: end: 20090602
  3. FUROSEMIDE [Interacting]
     Dosage: 1DFORM=1TABS,20MG
     Route: 048
     Dates: end: 20090602
  4. PRITOR [Interacting]
     Route: 048
     Dates: end: 20090602
  5. GLUCOR [Concomitant]
  6. VASTAREL [Concomitant]
  7. AMAREL [Concomitant]
  8. MOGADON [Concomitant]
  9. POLERY [Concomitant]

REACTIONS (6)
  - ANAEMIA [None]
  - DIARRHOEA [None]
  - DRUG INTERACTION [None]
  - LACTIC ACIDOSIS [None]
  - RENAL FAILURE ACUTE [None]
  - VOMITING [None]
